FAERS Safety Report 6872976-4 (Version None)
Quarter: 2010Q3

REPORT INFORMATION
  Report Type: 
  Country: None (occurrence: None)
  Receive Date: 20100723
  Receipt Date: 20090123
  Transmission Date: 20110219
  Serious: No
  Sender: FDA-Public Use
  Company Number: US-PFIZER INC-2008100215

PATIENT
  Sex: Male
  Weight: 54.545 kg

DRUGS (1)
  1. CHANTIX [Suspect]
     Route: 048
     Dates: start: 20081105

REACTIONS (5)
  - ABDOMINAL DISCOMFORT [None]
  - HYPERCHLORHYDRIA [None]
  - MALAISE [None]
  - NAUSEA [None]
  - VOMITING [None]
